FAERS Safety Report 7215065-1 (Version None)
Quarter: 2011Q1

REPORT INFORMATION
  Report Type: 
  Country: None (occurrence: None)
  Receive Date: 20110107
  Receipt Date: 20100802
  Transmission Date: 20110831
  Serious: No
  Sender: FDA-Public Use
  Company Number: A0873468A

PATIENT
  Age: 60 Year
  Sex: Female

DRUGS (4)
  1. CRESTOR [Concomitant]
  2. ACE INHIBITOR [Concomitant]
  3. ASPIRIN [Concomitant]
  4. LOVAZA [Suspect]
     Indication: MICROVASCULAR ANGINA
     Dosage: 1G PER DAY
     Route: 048

REACTIONS (2)
  - RASH GENERALISED [None]
  - HYPERSENSITIVITY [None]
